FAERS Safety Report 13367751 (Version 1)
Quarter: 2017Q1

REPORT INFORMATION
  Report Type: Spontaneous
  Country: IT (occurrence: IT)
  Receive Date: 20170324
  Receipt Date: 20170324
  Transmission Date: 20170429
  Serious: Yes (Other)
  Sender: FDA-Public Use
  Company Number: IT-009507513-1703ITA009060

PATIENT
  Age: 67 Year
  Sex: Female

DRUGS (9)
  1. CLOPIDOGREL [Concomitant]
     Active Substance: CLOPIDOGREL BISULFATE
  2. RANITIDINE. [Concomitant]
     Active Substance: RANITIDINE
  3. TAREG [Concomitant]
     Active Substance: VALSARTAN
  4. SINEMET [Suspect]
     Active Substance: CARBIDOPA\LEVODOPA
     Indication: PARKINSON^S DISEASE
     Dosage: 100MG+25MG DIVISIBLE TABLETS, 3 DOSE UNITS, DAILY
     Route: 048
     Dates: start: 20120101, end: 20170306
  5. INDERAL [Concomitant]
     Active Substance: PROPRANOLOL HYDROCHLORIDE
  6. JANUMET [Concomitant]
     Active Substance: METFORMIN HYDROCHLORIDE\SITAGLIPTIN PHOSPHATE
     Route: 048
  7. REXTAT [Concomitant]
  8. MIRAPEXIN [Suspect]
     Active Substance: PRAMIPEXOLE
     Indication: PARKINSON^S DISEASE
     Dosage: EXENDED RELEASE TABLET, 1 DOSE UNIT, DAILY
     Route: 048
     Dates: start: 20110615, end: 20170306
  9. METFORMIN [Concomitant]
     Active Substance: METFORMIN HYDROCHLORIDE
     Indication: DIABETES MELLITUS

REACTIONS (3)
  - Orthostatic hypotension [Recovering/Resolving]
  - Dysarthria [Recovering/Resolving]
  - Hallucination, visual [Recovering/Resolving]

NARRATIVE: CASE EVENT DATE: 20161109
